FAERS Safety Report 16381954 (Version 1)
Quarter: 2019Q2

REPORT INFORMATION
  Report Type: Report from Study
  Country: None (occurrence: GT)
  Receive Date: 20190603
  Receipt Date: 20190603
  Transmission Date: 20190711
  Serious: Yes (Other)
  Sender: FDA-Public Use
  Company Number: GT-ABBVIE-19S-069-2803734-00

PATIENT
  Age: 64 Year
  Sex: Female
  Weight: 37 kg

DRUGS (2)
  1. ZEMPLAR [Suspect]
     Active Substance: PARICALCITOL
     Indication: HYPERPARATHYROIDISM SECONDARY
     Dosage: 2 BLISTERS FOR TREATMENT (6 WEEKS)
     Route: 042
     Dates: start: 20170801
  2. ZEMPLAR [Suspect]
     Active Substance: PARICALCITOL
     Dosage: 3 WEEKLY BLUFFS
     Route: 042

REACTIONS (4)
  - Pain [Recovering/Resolving]
  - Visual impairment [Not Recovered/Not Resolved]
  - Headache [Recovering/Resolving]
  - Blood parathyroid hormone abnormal [Recovering/Resolving]

NARRATIVE: CASE EVENT DATE: 2017
